FAERS Safety Report 10371032 (Version 1)
Quarter: 2014Q3

REPORT INFORMATION
  Report Type: Spontaneous
  Country: US (occurrence: US)
  Receive Date: 20140808
  Receipt Date: 20140808
  Transmission Date: 20150326
  Serious: Yes (Other)
  Sender: FDA-Public Use
  Company Number: US-TEVA-500363USA

PATIENT
  Age: 23 Year
  Sex: Female
  Weight: 60.38 kg

DRUGS (1)
  1. PARAGARD T380A [Suspect]
     Active Substance: COPPER
     Indication: CONTRACEPTION
     Route: 063
     Dates: start: 20140710, end: 20140804

REACTIONS (5)
  - Exposure during breast feeding [Unknown]
  - Uterine perforation [Recovered/Resolved]
  - Flank pain [Unknown]
  - Cystitis [Unknown]
  - Abdominal pain lower [Unknown]

NARRATIVE: CASE EVENT DATE: 20140714
